FAERS Safety Report 7586659-9 (Version None)
Quarter: 2011Q3

REPORT INFORMATION
  Report Type: 
  Country: None (occurrence: None)
  Receive Date: 20110701
  Receipt Date: 20110620
  Transmission Date: 20111222
  Serious: Yes (Other)
  Sender: FDA-Public Use
  Company Number: US-ELI_LILLY_AND_COMPANY-US200910005438

PATIENT
  Sex: Male
  Weight: 120.18 kg

DRUGS (8)
  1. SIMVASTAN [Concomitant]
  2. LISINOPRIL [Concomitant]
     Dosage: 20 UNK, UNK
  3. AMARYL [Concomitant]
  4. GLIMEPIRIDE [Concomitant]
     Dosage: 4 MG, BID
  5. HYDROCHLOROTHIAZID [Concomitant]
  6. ACTOS [Concomitant]
     Indication: DIABETES MELLITUS
  7. BYETTA [Suspect]
     Dosage: UNK, UNKNOWN
     Route: 065
     Dates: start: 20060201, end: 20081201
  8. LASIX [Concomitant]
     Dosage: 20 MG, QD

REACTIONS (1)
  - RENAL FAILURE CHRONIC [None]
